FAERS Safety Report 12470645 (Version 1)
Quarter: 2016Q2

REPORT INFORMATION
  Report Type: Spontaneous
  Country: US (occurrence: None)
  Receive Date: 20160615
  Receipt Date: 20160615
  Transmission Date: 20160815
  Serious: Yes (Other)
  Sender: FDA-Public Use
  Company Number: None

PATIENT
  Age: 62 Year
  Sex: Male
  Weight: 106.6 kg

DRUGS (11)
  1. NAPROXEN SODIUM. [Concomitant]
     Active Substance: NAPROXEN SODIUM
  2. SEROQUEL [Concomitant]
     Active Substance: QUETIAPINE FUMARATE
  3. ADDERALL [Concomitant]
     Active Substance: AMPHETAMINE ASPARTATE\AMPHETAMINE SULFATE\DEXTROAMPHETAMINE SACCHARATE\DEXTROAMPHETAMINE SULFATE
  4. HYDROCHLOROTHIAZIDE. [Concomitant]
     Active Substance: HYDROCHLOROTHIAZIDE
  5. MUSCLE RELAXERS [Concomitant]
     Active Substance: UNSPECIFIED INGREDIENT
  6. TURMERIC [Concomitant]
     Active Substance: TURMERIC
  7. LATUDA [Suspect]
     Active Substance: LURASIDONE HYDROCHLORIDE
     Indication: BIPOLAR DISORDER
     Dosage: 30 TABLET(S) ONCE A DAY TAKEN BY MOUTH
     Route: 048
     Dates: start: 20151101, end: 20160601
  8. ENALAPRIL [Concomitant]
     Active Substance: ENALAPRIL
  9. TYLENOL WITH CODEINE [Concomitant]
     Active Substance: ACETAMINOPHEN\CODEINE PHOSPHATE
  10. BIPAP [Concomitant]
     Active Substance: DEVICE
  11. TUMS [Concomitant]
     Active Substance: CALCIUM CARBONATE

REACTIONS (3)
  - Plicated tongue [None]
  - Glossodynia [None]
  - Scar [None]

NARRATIVE: CASE EVENT DATE: 20160501
